FAERS Safety Report 9052735 (Version 1)
Quarter: 2013Q1

REPORT INFORMATION
  Report Type: Spontaneous
  Country: JP (occurrence: JP)
  Receive Date: 20130207
  Receipt Date: 20130207
  Transmission Date: 20140127
  Serious: Yes (Life-Threatening, Hospitalization, Disabling)
  Sender: FDA-Public Use
  Company Number: JP-JNJFOC-20130202901

PATIENT
  Age: 66 None
  Sex: Male
  Weight: 58 kg

DRUGS (7)
  1. XARELTO [Suspect]
     Indication: CEREBROVASCULAR ACCIDENT PROPHYLAXIS
     Route: 048
     Dates: start: 20121203, end: 20121212
  2. XARELTO [Suspect]
     Indication: ATRIAL FIBRILLATION
     Route: 048
     Dates: start: 20121203, end: 20121212
  3. NEUROVITAN [Concomitant]
     Indication: OPTIC ATROPHY
     Route: 048
     Dates: end: 20121213
  4. GLIMEPIRIDE [Concomitant]
     Indication: DIABETES MELLITUS
     Route: 048
     Dates: start: 20121030, end: 20121213
  5. MECOBALAMIN [Concomitant]
     Indication: OPTIC ATROPHY
     Route: 048
     Dates: end: 20121203
  6. EXFORGE [Concomitant]
     Indication: HYPERTENSION
     Route: 048
     Dates: start: 20121030, end: 20121213
  7. JANUVIA [Concomitant]
     Indication: DIABETES MELLITUS
     Route: 048
     Dates: start: 20121030, end: 20121213

REACTIONS (3)
  - Cerebral infarction [Unknown]
  - Epistaxis [Recovered/Resolved]
  - Drug ineffective [Unknown]
